FAERS Safety Report 12638994 (Version 2)
Quarter: 2016Q3

REPORT INFORMATION
  Report Type: Spontaneous
  Country: US (occurrence: US)
  Receive Date: 20160809
  Receipt Date: 20160818
  Transmission Date: 20161109
  Serious: No
  Sender: FDA-Public Use
  Company Number: ALCN2016US005416

PATIENT
  Age: 44 Year
  Sex: Female

DRUGS (3)
  1. TEARS NATURALE FREE [Suspect]
     Active Substance: DEXTRAN 70\HYPROMELLOSE 2910 (4000 MPA.S)
     Indication: SJOGREN^S SYNDROME
     Dosage: 1 GTT, PRN
     Route: 047
     Dates: start: 2006
  2. GENTEAL MODERATE TO SEVERE GEL DROPS [Suspect]
     Active Substance: CARBOXYMETHYLCELLULOSE SODIUM\HYPROMELLOSES
     Indication: SJOGREN^S SYNDROME
     Dosage: 1 DF, QHS
     Route: 047
  3. GENTEAL MILD [Suspect]
     Active Substance: HYPROMELLOSE 2910 (4000 MPA.S)
     Indication: SJOGREN^S SYNDROME
     Dosage: 1 DF, PRN
     Route: 047

REACTIONS (1)
  - Joint dislocation [Recovered/Resolved]

NARRATIVE: CASE EVENT DATE: 201607
